FAERS Safety Report 17118381 (Version 1)
Quarter: 2019Q4

REPORT INFORMATION
  Report Type: Spontaneous
  Country: US (occurrence: US)
  Receive Date: 20191205
  Receipt Date: 20191205
  Transmission Date: 20200122
  Serious: Yes (Hospitalization)
  Sender: FDA-Public Use
  Company Number: US-ASTRAZENECA-2019SF73853

PATIENT
  Sex: Female
  Weight: 5.4 kg

DRUGS (2)
  1. POLY-VI-FLOR/IRON [Concomitant]
  2. SYNAGIS [Suspect]
     Active Substance: PALIVIZUMAB
     Indication: ANTIVIRAL PROPHYLAXIS
     Route: 030

REACTIONS (3)
  - Eating disorder [Unknown]
  - Conjunctivitis [Unknown]
  - Constipation [Unknown]
